FAERS Safety Report 14460068 (Version 1)
Quarter: 2018Q1

REPORT INFORMATION
  Report Type: Spontaneous
  Country: BE (occurrence: BE)
  Receive Date: 20180130
  Receipt Date: 20180130
  Transmission Date: 20180509
  Serious: Yes (Hospitalization)
  Sender: FDA-Public Use
  Company Number: BE-BAYER-2018-012361

PATIENT
  Sex: Female

DRUGS (1)
  1. MOXIFLOXACIN ORAL [Suspect]
     Active Substance: MOXIFLOXACIN
     Dosage: 2 DF, UNK
     Dates: start: 2016

REACTIONS (3)
  - Paralysis [Unknown]
  - Dizziness [Unknown]
  - Asthenia [Unknown]
